FAERS Safety Report 6687947-0 (Version None)
Quarter: 2010Q2

REPORT INFORMATION
  Report Type: 
  Country: None (occurrence: None)
  Receive Date: 20100420
  Receipt Date: 20100412
  Transmission Date: 20101027
  Serious: Yes (Hospitalization)
  Sender: FDA-Public Use
  Company Number: DE-ASTRAZENECA-2009SE07639

PATIENT
  Age: 80 Year
  Sex: Female
  Weight: 59 kg

DRUGS (20)
  1. OMEPRAZOLE [Suspect]
     Indication: PROPHYLAXIS AGAINST GASTROINTESTINAL ULCER
     Route: 048
     Dates: start: 20081101, end: 20090503
  2. SEROQUEL [Suspect]
     Indication: RESTLESSNESS
     Route: 048
     Dates: start: 20081101
  3. DELIX [Suspect]
     Indication: HYPERTENSION
     Route: 048
     Dates: start: 20000101, end: 20090512
  4. DELIX [Suspect]
     Route: 048
     Dates: start: 20090513
  5. FALITHROM [Suspect]
     Indication: TACHYARRHYTHMIA
     Route: 048
     Dates: start: 20081101, end: 20090504
  6. SIMVAHEXAL [Suspect]
     Indication: HYPERLIPIDAEMIA
     Route: 048
     Dates: start: 20081101, end: 20090505
  7. CORDANUM [Suspect]
     Indication: TACHYARRHYTHMIA
     Route: 048
     Dates: start: 20081101, end: 20090504
  8. TORSEMIDE [Suspect]
     Indication: HYPERTENSION
     Route: 048
     Dates: start: 20081101
  9. AMLODIPINE [Suspect]
     Indication: HYPERTENSION
     Route: 048
     Dates: start: 20081101, end: 20090515
  10. METHOTREXATE [Suspect]
     Indication: RHEUMATOID ARTHRITIS
     Route: 058
     Dates: start: 20081101, end: 20090504
  11. PREDNISOLON [Concomitant]
     Indication: RHEUMATOID ARTHRITIS
     Route: 048
     Dates: start: 20020101
  12. PREDNISOLON [Concomitant]
     Route: 048
     Dates: start: 20090520
  13. PREDNISOLON [Concomitant]
     Route: 048
     Dates: start: 20090526
  14. PREDNISOLON [Concomitant]
     Route: 048
     Dates: start: 20090527
  15. PREDNISOLON [Concomitant]
     Route: 048
  16. ACTONEL 35 PLUS [Concomitant]
     Indication: OSTEOPOROSIS
     Dosage: 1DF= 35 MG RISEDRONIC ACID + 1000MG CALCIUM + 880 IU VIT.D
     Route: 048
     Dates: start: 20040101, end: 20090505
  17. XIPAMIDE [Concomitant]
     Indication: HYPERTENSION
     Route: 048
     Dates: start: 20081101, end: 20090503
  18. DIGITOXIN TAB [Concomitant]
     Indication: TACHYARRHYTHMIA
     Route: 048
     Dates: start: 20081101
  19. FOLIC ACID [Concomitant]
     Indication: IMMUNOSUPPRESSANT DRUG THERAPY
     Dosage: UNKOWN DOSE
     Route: 048
     Dates: start: 20081101, end: 20090504
  20. DREISAFER [Concomitant]
     Indication: IRON DEFICIENCY
     Route: 048
     Dates: start: 20081101, end: 20090504

REACTIONS (2)
  - ALVEOLITIS [None]
  - TRANSAMINASES INCREASED [None]
